FAERS Safety Report 8252982-8 (Version None)
Quarter: 2012Q2

REPORT INFORMATION
  Report Type: 
  Country: None (occurrence: None)
  Receive Date: 20120402
  Receipt Date: 20120328
  Transmission Date: 20120825
  Serious: Yes (Hospitalization)
  Sender: FDA-Public Use
  Company Number: US-MERCK-1202USA02578

PATIENT
  Age: 45 Year
  Sex: Female

DRUGS (3)
  1. EPZICOM [Concomitant]
     Route: 065
     Dates: start: 20100101
  2. METHADONE HYDROCHLORIDE [Concomitant]
     Route: 065
  3. ISENTRESS [Suspect]
     Indication: HIV INFECTION
     Route: 048
     Dates: start: 20100101

REACTIONS (2)
  - RENAL IMPAIRMENT [None]
  - BLOOD TRIGLYCERIDES INCREASED [None]
